FAERS Safety Report 4672892-2 (Version None)
Quarter: 2005Q2

REPORT INFORMATION
  Report Type: 
  Country: None (occurrence: None)
  Receive Date: 20050523
  Receipt Date: 20050516
  Transmission Date: 20051028
  Serious: Yes (Other)
  Sender: FDA-Public Use
  Company Number: US-2005-006882

PATIENT
  Sex: Female

DRUGS (1)
  1. FINACEA [Suspect]
     Indication: ROSACEA
     Dosage: 2X/DAY TOPICAL
     Route: 061
     Dates: start: 20040601, end: 20040901

REACTIONS (3)
  - DRUG INEFFECTIVE [None]
  - NEOPLASM RECURRENCE [None]
  - SKIN CANCER [None]
